FAERS Safety Report 5179903-9 (Version None)
Quarter: 2006Q4

REPORT INFORMATION
  Report Type: 
  Country: None (occurrence: None)
  Receive Date: 20061211
  Receipt Date: 20061128
  Transmission Date: 20070319
  Serious: Yes (Hospitalization, Other)
  Sender: FDA-Public Use
  Company Number: 2006107806

PATIENT
  Age: 79 Year
  Sex: Female

DRUGS (1)
  1. LYRICA [Suspect]

REACTIONS (4)
  - BLOOD PRESSURE INCREASED [None]
  - PAPILLOEDEMA [None]
  - PARAESTHESIA [None]
  - VISUAL FIELD DEFECT [None]
